FAERS Safety Report 7826008-1 (Version None)
Quarter: 2011Q4

REPORT INFORMATION
  Report Type: 
  Country: None (occurrence: None)
  Receive Date: 20111019
  Receipt Date: 20111010
  Transmission Date: 20120403
  Serious: Yes (Hospitalization)
  Sender: FDA-Public Use
  Company Number: US-ASTRAZENECA-2011SE53493

PATIENT
  Age: 42 Year
  Sex: Female

DRUGS (17)
  1. TRAMADOL HCL [Concomitant]
  2. SEROQUEL [Suspect]
     Route: 048
  3. HYDROCODONE BITARTRATE AND ACETAMINOPHEN [Concomitant]
     Dosage: 7.5 MG/750 MG
  4. IBUPROFEN [Concomitant]
  5. VALACICLOVIR [Concomitant]
  6. CLONAZEPAM [Concomitant]
  7. DOXEPIN [Concomitant]
  8. SEROQUEL [Suspect]
     Indication: MENTAL DISABILITY
     Route: 048
  9. SULFAMETHOXAZOLE AND TRIMETHOPRIM [Concomitant]
     Dosage: 800/160
  10. ZOLPIDEM [Concomitant]
  11. PROMETHAZINE [Concomitant]
  12. ALPRAZOLAM [Concomitant]
  13. ADDERALL 5 [Concomitant]
     Route: 048
  14. MEDROXYPROGESTERONE [Concomitant]
  15. SEROQUEL [Suspect]
     Indication: BIPOLAR DISORDER
     Route: 048
  16. SEROQUEL [Suspect]
     Route: 048
  17. VALACICLOVIR [Concomitant]

REACTIONS (12)
  - FEELING ABNORMAL [None]
  - DRUG DOSE OMISSION [None]
  - IMPAIRED WORK ABILITY [None]
  - AGITATION [None]
  - HEADACHE [None]
  - PANIC REACTION [None]
  - INSOMNIA [None]
  - WRONG TECHNIQUE IN DRUG USAGE PROCESS [None]
  - SOMATIC DELUSION [None]
  - ACTIVITIES OF DAILY LIVING IMPAIRED [None]
  - PARANOIA [None]
  - EUPHORIC MOOD [None]
